FAERS Safety Report 7398797-4 (Version None)
Quarter: 2011Q2

REPORT INFORMATION
  Report Type: 
  Country: None (occurrence: None)
  Receive Date: 20110404
  Receipt Date: 20110404
  Transmission Date: 20111010
  Serious: Yes (Other)
  Sender: FDA-Public Use
  Company Number: None

PATIENT
  Age: 52 Year
  Sex: Male
  Weight: 127.0072 kg

DRUGS (5)
  1. PREVACID [Suspect]
     Indication: GASTROOESOPHAGEAL REFLUX DISEASE
     Dosage: 30 MG ONCE PER DAY PO
     Route: 048
     Dates: start: 20100801, end: 20110301
  2. VOLTAREN [Concomitant]
  3. TYLENOL #3 WITH CODEINE [Concomitant]
  4. TAMSULOSIN [Concomitant]
  5. RUBAXIN [Concomitant]

REACTIONS (2)
  - HAEMATOCHEZIA [None]
  - RECTAL HAEMORRHAGE [None]
